FAERS Safety Report 9220463 (Version 1)
Quarter: 2013Q2

REPORT INFORMATION
  Report Type: Spontaneous
  Country: US (occurrence: US)
  Receive Date: 20130409
  Receipt Date: 20130409
  Transmission Date: 20140414
  Serious: Yes (Other)
  Sender: FDA-Public Use
  Company Number: US-ASTRAZENECA-2013SE21054

PATIENT
  Age: 41 Year
  Sex: Female
  Weight: 98.4 kg

DRUGS (5)
  1. ARIMIDEX [Suspect]
     Indication: BREAST CANCER
     Route: 048
     Dates: start: 201006, end: 2012
  2. ZOLADEX [Suspect]
     Indication: BREAST CANCER
     Route: 058
     Dates: start: 201006
  3. TAMOXIFEN [Suspect]
     Indication: BREAST CANCER
     Route: 048
     Dates: start: 2007, end: 201006
  4. FASLODEX [Suspect]
     Indication: BREAST CANCER
     Route: 030
     Dates: start: 2012
  5. ZOMETA [Concomitant]
     Indication: BREAST CANCER
     Dates: start: 2009

REACTIONS (4)
  - Lung disorder [Unknown]
  - Disease progression [Unknown]
  - Injection site pruritus [Unknown]
  - Intentional drug misuse [Unknown]
